FAERS Safety Report 7264760-7 (Version None)
Quarter: 2011Q1

REPORT INFORMATION
  Report Type: 
  Country: None (occurrence: None)
  Receive Date: 20110131
  Receipt Date: 20110117
  Transmission Date: 20110831
  Serious: Yes (Other)
  Sender: FDA-Public Use
  Company Number: TR-RANBAXY-2010RR-40079

PATIENT
  Age: 30 Year
  Sex: Female

DRUGS (1)
  1. RISPERIDONE [Suspect]
     Dosage: 3 MG, UNK

REACTIONS (3)
  - HYPERPROLACTINAEMIA [None]
  - GALACTORRHOEA [None]
  - AMENORRHOEA [None]
